FAERS Safety Report 7889914-8 (Version None)
Quarter: 2011Q4

REPORT INFORMATION
  Report Type: 
  Country: None (occurrence: None)
  Receive Date: 20111103
  Receipt Date: 20111021
  Transmission Date: 20120403
  Serious: Yes (Hospitalization)
  Sender: FDA-Public Use
  Company Number: US-MYLANLABS-2011S1022189

PATIENT
  Age: 61 Year
  Sex: Male

DRUGS (15)
  1. MYCOPHENOLATE MOFETIL [Concomitant]
     Indication: IMMUNOSUPPRESSION
     Dosage: 1500MG DAILY
     Route: 065
     Dates: start: 20040701
  2. FOLIC ACID [Concomitant]
     Route: 065
  3. BENAZEPRIL HYDROCHLORIDE [Concomitant]
     Route: 065
  4. MINOXIDIL [Concomitant]
     Route: 065
  5. AMLODIPINE [Concomitant]
     Route: 065
  6. ASPIRIN [Concomitant]
     Route: 065
  7. BUSPIRONE [Concomitant]
     Route: 065
  8. LEVOFLOXACIN [Concomitant]
     Indication: PNEUMONITIS
     Route: 042
  9. DEXAMETHASONE [Concomitant]
     Indication: PNEUMONITIS
     Route: 065
  10. METHYLPREDNISOLONE [Concomitant]
     Indication: PULMONARY TOXICITY
     Dosage: HIGH-DOSE
     Route: 065
  11. ATENOLOL [Concomitant]
     Route: 065
  12. TACROLIMUS [Suspect]
     Indication: IMMUNOSUPPRESSION
     Dosage: LOW-DOSE
     Route: 065
  13. PREDNISONE [Concomitant]
     Indication: IMMUNOSUPPRESSION
     Dosage: 5MG DAILY
     Route: 065
  14. ATORVASTATIN [Concomitant]
     Route: 065
  15. ESOMEPRAZOLE [Concomitant]
     Route: 065

REACTIONS (1)
  - THROMBOTIC MICROANGIOPATHY [None]
